FAERS Safety Report 4349430-7 (Version None)
Quarter: 2004Q2

REPORT INFORMATION
  Report Type: 
  Country: None (occurrence: None)
  Receive Date: 20040428
  Receipt Date: 20040419
  Transmission Date: 20050107
  Serious: Yes (Hospitalization)
  Sender: FDA-Public Use
  Company Number: PHFR2004GB01831

PATIENT
  Age: 68 Year
  Sex: Male

DRUGS (2)
  1. VALSARTAN [Suspect]
     Indication: HYPERTENSION
     Dosage: 160 MG/DAY
     Route: 048
  2. DICLOFENAC SODIUM [Suspect]
     Indication: ANALGESIC EFFECT
     Dosage: 75 MG, PRN
     Route: 048
     Dates: end: 20040330

REACTIONS (3)
  - DIZZINESS [None]
  - HYPOTENSION [None]
  - VISION BLURRED [None]
